FAERS Safety Report 9176082 (Version 1)
Quarter: 2013Q1

REPORT INFORMATION
  Report Type: Spontaneous
  Country: US (occurrence: US)
  Receive Date: 20130318
  Receipt Date: 20130318
  Transmission Date: 20140127
  Serious: Yes (Hospitalization)
  Sender: FDA-Public Use
  Company Number: US-RB-051173-13

PATIENT
  Sex: Female

DRUGS (2)
  1. SUBOXONE TABLET [Suspect]
     Route: 060
     Dates: start: 201203, end: 201207
  2. SUBOXONE TABLET [Suspect]
     Indication: DRUG DEPENDENCE
     Dosage: UNKNNOWN DOSAGE DETAILS WHILE GRADUALLY WEANING OFF
     Route: 060
     Dates: start: 201207, end: 201208

REACTIONS (1)
  - Drug rehabilitation [Recovered/Resolved]
